FAERS Safety Report 8758864 (Version 1)
Quarter: 2012Q4

REPORT INFORMATION
  Report Type: 
  Country: US (occurrence: US)
  Receive Date: 20120829
  Receipt Date: 20120829
  Transmission Date: 20130627
  Serious: Yes (Other)
  Sender: FDA-Public Use
  Company Number: PHHY2012US072832

PATIENT

DRUGS (1)
  1. PAMIDRONATE [Suspect]
     Route: 065

REACTIONS (1)
  - Osteonecrosis of jaw [Unknown]
